FAERS Safety Report 16092649 (Version 2)
Quarter: 2022Q2

REPORT INFORMATION
  Report Type: Report from Study
  Country: JP (occurrence: JP)
  Receive Date: 20190319
  Receipt Date: 20220611
  Transmission Date: 20220720
  Serious: Yes (Death, Other)
  Sender: FDA-Public Use
  Company Number: JP-KYOWAKIRIN-2018AKK002141

PATIENT
  Age: 83 Year
  Sex: Female

DRUGS (7)
  1. DARBEPOETIN ALFA [Suspect]
     Active Substance: DARBEPOETIN ALFA
     Indication: Myelodysplastic syndrome
     Dosage: 120 MICROGRAM, QWK
     Route: 058
     Dates: start: 20150805, end: 20150923
  2. DARBEPOETIN ALFA [Suspect]
     Active Substance: DARBEPOETIN ALFA
     Dosage: 120 MICROGRAM, QWK
     Route: 058
     Dates: start: 20151007, end: 20151021
  3. FAMOTIDINE [Concomitant]
     Active Substance: FAMOTIDINE
     Dosage: 40 MILLIGRAM
     Route: 048
     Dates: end: 20151021
  4. CANDESARTAN CILEXETIL [Concomitant]
     Active Substance: CANDESARTAN CILEXETIL
     Indication: Hypertension
     Dosage: 4 MILLIGRAM
     Route: 048
     Dates: end: 20151021
  5. EXJADE [Concomitant]
     Active Substance: DEFERASIROX
     Dosage: 750 MILLIGRAM
     Route: 048
     Dates: end: 20151021
  6. FELBINAC [Concomitant]
     Active Substance: FELBINAC
     Dosage: UNK, PRN
     Dates: end: 20151021
  7. CARBIMAZOLE [Concomitant]
     Active Substance: CARBIMAZOLE
     Indication: Hypothyroidism
     Dosage: 2.5 MILLIGRAM
     Route: 048
     Dates: end: 20151021

REACTIONS (4)
  - Cardiac failure congestive [Fatal]
  - Atrial fibrillation [Fatal]
  - Renal disorder [Fatal]
  - Liver disorder [Fatal]

NARRATIVE: CASE EVENT DATE: 20150909
